FAERS Safety Report 7312545-5 (Version None)
Quarter: 2011Q1

REPORT INFORMATION
  Report Type: 
  Country: None (occurrence: None)
  Receive Date: 20110224
  Receipt Date: 20110215
  Transmission Date: 20110831
  Serious: Yes (Death, Hospitalization)
  Sender: FDA-Public Use
  Company Number: DE-BAXTER-2011BH002616

PATIENT
  Sex: Female
  Weight: 63 kg

DRUGS (13)
  1. EXTRANEAL [Suspect]
     Indication: TUBULOINTERSTITIAL NEPHRITIS
     Route: 033
     Dates: start: 20100101, end: 20110116
  2. FOLSAN [Concomitant]
     Indication: PRODUCT USED FOR UNKNOWN INDICATION
     Route: 065
  3. SULFAMETHOXAZOLE AND TRIMETHOPRIM [Concomitant]
     Indication: PRODUCT USED FOR UNKNOWN INDICATION
     Route: 065
  4. PHYSIOSOL IN PLASTIC CONTAINER [Suspect]
     Indication: PERITONEAL DIALYSIS
     Route: 033
     Dates: start: 20090101, end: 20110116
  5. EUTHYROX [Concomitant]
     Indication: PRODUCT USED FOR UNKNOWN INDICATION
     Route: 065
  6. LOPEDIUM [Concomitant]
     Indication: PRODUCT USED FOR UNKNOWN INDICATION
     Route: 065
  7. PHYSIOSOL IN PLASTIC CONTAINER [Suspect]
     Indication: TUBULOINTERSTITIAL NEPHRITIS
     Route: 033
     Dates: start: 20090101, end: 20110116
  8. RANACET [Concomitant]
     Indication: PRODUCT USED FOR UNKNOWN INDICATION
     Route: 065
  9. FERLECIT [Concomitant]
     Indication: PRODUCT USED FOR UNKNOWN INDICATION
     Route: 065
  10. EXTRANEAL [Suspect]
     Indication: PERITONEAL DIALYSIS
     Route: 033
     Dates: start: 20100101, end: 20110116
  11. PANTOZOL [Concomitant]
     Indication: PRODUCT USED FOR UNKNOWN INDICATION
     Route: 065
  12. ALLOPURINOL [Concomitant]
     Indication: PRODUCT USED FOR UNKNOWN INDICATION
     Route: 065
  13. ARANESP [Concomitant]
     Indication: PRODUCT USED FOR UNKNOWN INDICATION
     Route: 065

REACTIONS (7)
  - LEUKOCYTOSIS [None]
  - HYPERKALAEMIA [None]
  - ESCHERICHIA URINARY TRACT INFECTION [None]
  - PULMONARY HAEMORRHAGE [None]
  - DISEASE PROGRESSION [None]
  - ANAEMIA [None]
  - THROMBOCYTOPENIA [None]
